FAERS Safety Report 19163033 (Version 1)
Quarter: 2021Q2

REPORT INFORMATION
  Report Type: Spontaneous
  Country: US (occurrence: US)
  Receive Date: 20210421
  Receipt Date: 20210421
  Transmission Date: 20210717
  Serious: No
  Sender: FDA-Public Use
  Company Number: US-Y-MABS THERAPEUTICS-2109557

PATIENT
  Sex: Male

DRUGS (4)
  1. S2 RACEPINEPHRINE MULTI?DOSE [Concomitant]
     Active Substance: RACEPINEPHRINE HYDROCHLORIDE
  2. DITROPAN [Concomitant]
     Active Substance: OXYBUTYNIN CHLORIDE
  3. ISRADIPINE. [Concomitant]
     Active Substance: ISRADIPINE
  4. DANYELZA [Suspect]
     Active Substance: NAXITAMAB-GQGK
     Indication: NEUROBLASTOMA
     Route: 042
     Dates: start: 20210407

REACTIONS (4)
  - Bladder spasm [Unknown]
  - Dyspnoea [Unknown]
  - Hypertension [Unknown]
  - Restlessness [Unknown]

NARRATIVE: CASE EVENT DATE: 20210407
